FAERS Safety Report 15328952 (Version 1)
Quarter: 2018Q3

REPORT INFORMATION
  Report Type: Spontaneous
  Country: US (occurrence: US)
  Receive Date: 20180823
  Receipt Date: 20180823
  Transmission Date: 20181010
  Serious: Yes (Life-Threatening, Hospitalization, Disabling)
  Sender: FDA-Public Use
  Company Number: None

PATIENT
  Age: 63 Year
  Sex: Female
  Weight: 56.25 kg

DRUGS (16)
  1. VYTORIN [Concomitant]
     Active Substance: EZETIMIBE\SIMVASTATIN
  2. 81 MG ASPIRIN [Concomitant]
     Active Substance: ASPIRIN
  3. RANITIDINE. [Concomitant]
     Active Substance: RANITIDINE
  4. HYDROXYZINE PAMOATE. [Concomitant]
     Active Substance: HYDROXYZINE PAMOATE
  5. FISH OIL [Concomitant]
     Active Substance: FISH OIL
  6. SUPER B COMPLEX VITAMIN [Concomitant]
  7. VERAPAMIL [Concomitant]
     Active Substance: VERAPAMIL HYDROCHLORIDE
  8. INDERAL [Concomitant]
     Active Substance: PROPRANOLOL HYDROCHLORIDE
  9. NITRO GLYCERIN [Concomitant]
  10. VITAMIN D [Concomitant]
     Active Substance: CHOLECALCIFEROL
  11. XYZAL(LEVOCETIRIZINE) [Concomitant]
  12. FIORICET [Concomitant]
     Active Substance: ACETAMINOPHEN\BUTALBITAL\CAFFEINE
  13. FIORINAL III [Concomitant]
  14. AIMOVIG [Suspect]
     Active Substance: ERENUMAB-AOOE
     Indication: MIGRAINE PROPHYLAXIS
     Dosage: ?          QUANTITY:2 INJECTION(S);OTHER FREQUENCY:2# 70MG INJ 1XMTLH;OTHER ROUTE:SUB CUTANEOUS?
     Dates: start: 20180729, end: 20180729
  15. COQ 10 [Concomitant]
     Active Substance: UBIDECARENONE
  16. MAGNESIUM [Concomitant]
     Active Substance: MAGNESIUM

REACTIONS (20)
  - Pyrexia [None]
  - Dyspnoea [None]
  - Erythema [None]
  - Urticaria [None]
  - Chest pain [None]
  - Tremor [None]
  - Cardiac disorder [None]
  - Muscle tightness [None]
  - Drug hypersensitivity [None]
  - Vision blurred [None]
  - Malaise [None]
  - Chills [None]
  - Influenza like illness [None]
  - Serum sickness [None]
  - Asthenia [None]
  - Blood pressure increased [None]
  - Discomfort [None]
  - Pain [None]
  - Fear [None]
  - Chest discomfort [None]

NARRATIVE: CASE EVENT DATE: 20180729
